FAERS Safety Report 10872205 (Version 1)
Quarter: 2015Q1

REPORT INFORMATION
  Report Type: Spontaneous
  Country: US (occurrence: None)
  Receive Date: 20150223
  Receipt Date: 20150223
  Transmission Date: 20150721
  Serious: No
  Sender: FDA-Public Use
  Company Number: None

PATIENT
  Age: 64 Year
  Sex: Female
  Weight: 63.5 kg

DRUGS (9)
  1. FISH OIL [Concomitant]
     Active Substance: FISH OIL
  2. MULTIPLE VITAMIN [Concomitant]
     Active Substance: VITAMINS
  3. RESTASIS [Suspect]
     Active Substance: CYCLOSPORINE
     Indication: DRY EYE
     Dosage: 2 DROPS 2 TIMES DAILY, TWICE DAILY
     Dates: start: 20120201, end: 20150207
  4. VITAMINS D [Concomitant]
  5. OMEPRAZOLE. [Concomitant]
     Active Substance: OMEPRAZOLE
  6. IRON [Concomitant]
     Active Substance: IRON
  7. METOPROLOL [Concomitant]
     Active Substance: METOPROLOL
  8. VITAMINS A [Concomitant]
  9. ESTRACE [Concomitant]
     Active Substance: ESTRADIOL

REACTIONS (3)
  - Sinusitis [None]
  - Eye pain [None]
  - Vision blurred [None]
